FAERS Safety Report 6445518-5 (Version None)
Quarter: 2009Q4

REPORT INFORMATION
  Report Type: 
  Country: None (occurrence: None)
  Receive Date: 20091110
  Receipt Date: 20090901
  Transmission Date: 20100525
  Serious: No
  Sender: FDA-Public Use
  Company Number: 1000008471

PATIENT
  Age: 53 Year
  Sex: Female

DRUGS (11)
  1. SAVELLA [Suspect]
     Indication: MYOFASCIAL PAIN SYNDROME
     Dosage: SEE IMAGE
     Route: 048
     Dates: start: 20090806, end: 20090806
  2. SAVELLA [Suspect]
     Indication: MYOFASCIAL PAIN SYNDROME
     Dosage: SEE IMAGE
     Route: 048
     Dates: start: 20090807, end: 20090808
  3. SAVELLA [Suspect]
     Indication: MYOFASCIAL PAIN SYNDROME
     Dosage: SEE IMAGE
     Route: 048
     Dates: start: 20090809, end: 20090812
  4. SAVELLA [Suspect]
     Indication: MYOFASCIAL PAIN SYNDROME
     Dosage: SEE IMAGE
     Route: 048
     Dates: start: 20090813
  5. PREMARIN [Concomitant]
  6. SINGULAIR [Concomitant]
  7. MOBIC [Concomitant]
  8. DARVOCET [Concomitant]
  9. XANAX [Concomitant]
  10. FOCALIN [Concomitant]
  11. AMITRIPTYLINE [Concomitant]

REACTIONS (3)
  - HEADACHE [None]
  - HYPERHIDROSIS [None]
  - NAUSEA [None]
